FAERS Safety Report 13828704 (Version 3)
Quarter: 2017Q3

REPORT INFORMATION
  Report Type: Spontaneous
  Country: US (occurrence: US)
  Receive Date: 20170803
  Receipt Date: 20170823
  Transmission Date: 20171127
  Serious: Yes (Other)
  Sender: FDA-Public Use
  Company Number: US-JNJFOC-20170722564

PATIENT
  Age: 69 Year
  Sex: Male
  Weight: 120.2 kg

DRUGS (8)
  1. NEOSPORIN PLUS PAIN RELIEF MAXIMUM STRENGTH FIRST AID ANTIBIOTIC PAIN RELIEVING [Suspect]
     Active Substance: BACITRACIN ZINC\NEOMYCIN SULFATE\POLYMYXIN B SULFATE\PRAMOXINE HYDROCHLORIDE
     Indication: BLISTER
     Dosage: DOSE: PEA-SIZE, AS NEEDED, 1 DAB
     Route: 061
     Dates: start: 20170726, end: 20170726
  2. VITAMIN D3 [Concomitant]
     Active Substance: CHOLECALCIFEROL
     Indication: ROUTINE HEALTH MAINTENANCE
     Route: 042
  3. ASPIRIN. [Concomitant]
     Active Substance: ASPIRIN
     Indication: ROUTINE HEALTH MAINTENANCE
     Route: 065
  4. AMLODIPINE BESYLATE. [Concomitant]
     Active Substance: AMLODIPINE BESYLATE
     Indication: ROUTINE HEALTH MAINTENANCE
     Route: 065
  5. VITAMIN B12 [Concomitant]
     Active Substance: CYANOCOBALAMIN
     Indication: ROUTINE HEALTH MAINTENANCE
     Route: 060
  6. ZYLOPRIM [Concomitant]
     Active Substance: ALLOPURINOL
     Indication: ROUTINE HEALTH MAINTENANCE
     Route: 065
  7. ATENOLOL. [Concomitant]
     Active Substance: ATENOLOL
     Indication: ROUTINE HEALTH MAINTENANCE
     Route: 065
  8. PROBENECID/COLCHICINE [Concomitant]
     Indication: ROUTINE HEALTH MAINTENANCE
     Route: 065

REACTIONS (8)
  - Loss of consciousness [Recovered/Resolved]
  - Cold sweat [Recovered/Resolved]
  - Hypersensitivity [Recovered/Resolved]
  - Throat tightness [Recovered/Resolved]
  - Fall [Recovered/Resolved]
  - Drooling [Recovered/Resolved]
  - Gait disturbance [Recovered/Resolved]
  - Hypoaesthesia [Recovered/Resolved]

NARRATIVE: CASE EVENT DATE: 20170726
